FAERS Safety Report 5781508-3 (Version None)
Quarter: 2008Q2

REPORT INFORMATION
  Report Type: 
  Country: None (occurrence: None)
  Receive Date: 20080623
  Receipt Date: 20080616
  Transmission Date: 20081010
  Serious: Yes (Hospitalization)
  Sender: FDA-Public Use
  Company Number: US-KINGPHARMUSA00001-K200800677

PATIENT

DRUGS (8)
  1. ALTACE [Suspect]
     Dosage: 10 MG, QD
     Route: 048
     Dates: end: 20080302
  2. SEROPLEX [Suspect]
     Indication: DEPRESSION
     Dosage: UNK, UNK
     Route: 048
     Dates: start: 20080101, end: 20080302
  3. ALDACTONE [Suspect]
     Route: 048
     Dates: start: 20080227, end: 20080302
  4. MEPRONIZINE                        /00789201/ [Concomitant]
     Dates: start: 20080101, end: 20080227
  5. DOGMATIL [Concomitant]
     Dates: start: 20080101, end: 20080227
  6. ALDACTAZINE [Concomitant]
     Dates: start: 20080101, end: 20080226
  7. FLECAINIDE ACETATE [Concomitant]
  8. CORDARONE [Concomitant]

REACTIONS (2)
  - GENERAL PHYSICAL HEALTH DETERIORATION [None]
  - HYPONATRAEMIA [None]
